FAERS Safety Report 5123779-2 (Version None)
Quarter: 2006Q3

REPORT INFORMATION
  Report Type: 
  Country: None (occurrence: None)
  Receive Date: 20060811
  Receipt Date: 20060626
  Transmission Date: 20061208
  Serious: No
  Sender: FDA-Public Use
  Company Number: 200615783US

PATIENT
  Age: 72 Year
  Sex: Male

DRUGS (13)
  1. APIDRA [Suspect]
     Indication: DIABETES MELLITUS NON-INSULIN-DEPENDENT
     Dosage: 15 UNITS ON A DSLIDING SCALE U
     Dates: start: 20060620
  2. OPTICLIK [Suspect]
  3. TIKOSYN [Concomitant]
  4. DEMADEX [Concomitant]
  5. ZAROXOLYN [Concomitant]
  6. ALTACE [Concomitant]
  7. COREG [Concomitant]
  8. IMDUR [Concomitant]
  9. COUMADIN [Concomitant]
  10. POTASSIUM CHLORIDE [Concomitant]
  11. AMARYL [Concomitant]
  12. LEVOTHYROXINE SODIUM (LEVOXYL) [Concomitant]
  13. LANTUS [Concomitant]

REACTIONS (2)
  - BLOOD GLUCOSE INCREASED [None]
  - DIZZINESS [None]
